FAERS Safety Report 10380207 (Version 2)
Quarter: 2014Q3

REPORT INFORMATION
  Report Type: Spontaneous
  Country: US (occurrence: US)
  Receive Date: 20140813
  Receipt Date: 20140915
  Transmission Date: 20150326
  Serious: Yes (Hospitalization, Other)
  Sender: FDA-Public Use
  Company Number: US-BRISTOL-MYERS SQUIBB COMPANY-21276530

PATIENT
  Age: 56 Year
  Sex: Female
  Weight: 72.56 kg

DRUGS (1)
  1. ABILIFY [Suspect]
     Active Substance: ARIPIPRAZOLE
     Indication: DEPRESSION

REACTIONS (4)
  - Anaemia [Unknown]
  - Dyskinesia [Unknown]
  - Cerebrovascular accident [Unknown]
  - Thrombosis [Unknown]
